FAERS Safety Report 7905567-4 (Version None)
Quarter: 2011Q4

REPORT INFORMATION
  Report Type: 
  Country: None (occurrence: None)
  Receive Date: 20111110
  Receipt Date: 20111031
  Transmission Date: 20120403
  Serious: No
  Sender: FDA-Public Use
  Company Number: US-BIOGENIDEC-2011BI041853

PATIENT
  Age: 50 Year
  Sex: Female

DRUGS (1)
  1. TYSABRI [Suspect]
     Indication: MULTIPLE SCLEROSIS
     Route: 042
     Dates: start: 20100625

REACTIONS (7)
  - HERNIA PAIN [None]
  - MULTIPLE SCLEROSIS [None]
  - PAIN [None]
  - AMNESIA [None]
  - DYSSTASIA [None]
  - HEADACHE [None]
  - LIVER FUNCTION TEST ABNORMAL [None]
